FAERS Safety Report 17195369 (Version 1)
Quarter: 2020Q1

REPORT INFORMATION
  Report Type: Spontaneous
  Country: US (occurrence: US)
  Receive Date: 20191223
  Receipt Date: 20191223
  Transmission Date: 20200409
  Serious: Yes (Hospitalization)
  Sender: FDA-Public Use
  Company Number: None

PATIENT
  Age: 67 Year
  Sex: Female
  Weight: 63 kg

DRUGS (5)
  1. TRAZODONE [Concomitant]
     Active Substance: TRAZODONE HYDROCHLORIDE
     Dates: start: 20160101, end: 20191223
  2. SPIRONOLACTONE. [Concomitant]
     Active Substance: SPIRONOLACTONE
     Dates: start: 20160101, end: 20191223
  3. MTX [Concomitant]
     Active Substance: METHOTREXATE SODIUM
     Dates: start: 20170101, end: 20191223
  4. STELARA [Suspect]
     Active Substance: USTEKINUMAB
     Indication: CROHN^S DISEASE
     Dosage: ?          OTHER FREQUENCY:EVERY 8 WEEKS;?
     Route: 058
     Dates: start: 20181001, end: 20190121
  5. PROZAC [Concomitant]
     Active Substance: FLUOXETINE HYDROCHLORIDE
     Dates: start: 20160101, end: 20191223

REACTIONS (9)
  - Neuroleptic malignant syndrome [None]
  - Coronavirus test positive [None]
  - Pyrexia [None]
  - Serotonin syndrome [None]
  - Sneezing [None]
  - Mental status changes [None]
  - Lung opacity [None]
  - Cough [None]
  - Agitation [None]

NARRATIVE: CASE EVENT DATE: 20190121
